FAERS Safety Report 10436131 (Version 1)
Quarter: 2014Q3

REPORT INFORMATION
  Report Type: Spontaneous
  Country: US (occurrence: None)
  Receive Date: 20140905
  Receipt Date: 20140905
  Transmission Date: 20150326
  Serious: Yes (Other)
  Sender: FDA-Public Use
  Company Number: None

PATIENT
  Age: 55 Year
  Sex: Female
  Weight: 60.6 kg

DRUGS (2)
  1. SODIUM CHLORIDE. [Suspect]
     Active Substance: SODIUM CHLORIDE
     Indication: ANGIOPATHY
     Route: 042
     Dates: start: 20140903, end: 20140903
  2. SODIUM CHLORIDE. [Suspect]
     Active Substance: SODIUM CHLORIDE
     Indication: THERAPEUTIC PROCEDURE
     Route: 042
     Dates: start: 20140903, end: 20140903

REACTIONS (2)
  - Thrombosis in device [None]
  - Venous thrombosis [None]

NARRATIVE: CASE EVENT DATE: 20140903
